FAERS Safety Report 6973204-1 (Version None)
Quarter: 2010Q3

REPORT INFORMATION
  Report Type: 
  Country: None (occurrence: None)
  Receive Date: 20100909
  Receipt Date: 20100901
  Transmission Date: 20110219
  Serious: Yes (Other)
  Sender: FDA-Public Use
  Company Number: PT-ROCHE-724866

PATIENT
  Age: 50 Year
  Sex: Female

DRUGS (2)
  1. CELLCEPT [Suspect]
     Indication: LIVER TRANSPLANT
     Dosage: DOSE REPORTED AS: 1G EACH 12 HOURS
     Route: 065
  2. CYCLOSPORINE [Concomitant]

REACTIONS (2)
  - MYOPATHY [None]
  - PHOTOSENSITIVITY REACTION [None]
